FAERS Safety Report 25595238 (Version 2)
Quarter: 2025Q3

REPORT INFORMATION
  Report Type: Spontaneous
  Country: JP (occurrence: JP)
  Receive Date: 20250723
  Receipt Date: 20250804
  Transmission Date: 20251021
  Serious: Yes (Other)
  Sender: ALK-ABELLO
  Company Number: JP-ALK-ABELLO A/S-2025AA002576

PATIENT

DRUGS (7)
  1. MITICURE [Suspect]
     Active Substance: DERMATOPHAGOIDES FARINAE\DERMATOPHAGOIDES PTERONYSSINUS
     Indication: Rhinitis allergic
     Route: 060
     Dates: start: 20250609, end: 20250615
  2. MITICURE [Suspect]
     Active Substance: DERMATOPHAGOIDES FARINAE\DERMATOPHAGOIDES PTERONYSSINUS
     Route: 060
     Dates: start: 20250616, end: 20250713
  3. PRANLUKAST HEMIHYDRATE [Concomitant]
     Active Substance: PRANLUKAST HEMIHYDRATE
     Route: 048
  4. OLOPATADINE HYDROCHLORIDE [Concomitant]
     Active Substance: OLOPATADINE HYDROCHLORIDE
  5. OLOPATADINE HYDROCHLORIDE [Concomitant]
     Active Substance: OLOPATADINE HYDROCHLORIDE
     Dates: end: 20250713
  6. Talion [Concomitant]
     Route: 048
     Dates: start: 20250714
  7. Adoair diskus [Concomitant]

REACTIONS (5)
  - Angina pectoris [Unknown]
  - Tongue blistering [Unknown]
  - Oral pruritus [Recovered/Resolved]
  - Swollen tongue [Unknown]
  - Ear pruritus [Unknown]

NARRATIVE: CASE EVENT DATE: 20250101
